FAERS Safety Report 20726914 (Version 2)
Quarter: 2022Q3

REPORT INFORMATION
  Report Type: Spontaneous
  Country: US (occurrence: US)
  Receive Date: 20220419
  Receipt Date: 20220701
  Transmission Date: 20221027
  Serious: Yes (Other)
  Sender: FDA-Public Use
  Company Number: US-PFIZER INC-2020425879

PATIENT
  Age: 62 Year
  Sex: Female
  Weight: 61.69 kg

DRUGS (8)
  1. TOVIAZ [Suspect]
     Active Substance: FESOTERODINE FUMARATE
     Indication: Urinary incontinence
     Dosage: 8 MG, DAILY
     Route: 048
  2. TOVIAZ [Suspect]
     Active Substance: FESOTERODINE FUMARATE
     Indication: Hypertonic bladder
     Dosage: 4 MG
  3. TOVIAZ [Suspect]
     Active Substance: FESOTERODINE FUMARATE
     Dosage: 8 MG
  4. TOVIAZ [Suspect]
     Active Substance: FESOTERODINE FUMARATE
     Dosage: 8 MG, DAILY (2 OF THOSE 4MG TABLETS)
  5. LYRICA [Concomitant]
     Active Substance: PREGABALIN
     Indication: Fibromyalgia
     Dosage: 100 MG, 2X/DAY
     Dates: start: 2008
  6. LYRICA [Concomitant]
     Active Substance: PREGABALIN
     Indication: Migraine
     Dosage: 100 MG, 3X/DAY
     Dates: start: 2008
  7. TOPAMAX [Concomitant]
     Active Substance: TOPIRAMATE
     Dosage: UNK
  8. MYRBETRIQ [Concomitant]
     Active Substance: MIRABEGRON
     Dosage: UNK

REACTIONS (9)
  - Drug ineffective [Unknown]
  - Amnesia [Unknown]
  - Cerebral disorder [Unknown]
  - Memory impairment [Unknown]
  - Weight decreased [Unknown]
  - Expired product administered [Unknown]
  - Pain in extremity [Unknown]
  - Eating disorder [Unknown]
  - Condition aggravated [Unknown]
